FAERS Safety Report 9011654 (Version 3)
Quarter: 2013Q2

REPORT INFORMATION
  Report Type: Report from Study
  Country: DE (occurrence: TR)
  Receive Date: 20130108
  Receipt Date: 20130423
  Transmission Date: 20140414
  Serious: Yes (Hospitalization)
  Sender: FDA-Public Use
  Company Number: DE-ACTELION-A-US2013-77240

PATIENT
  Age: 21 Year
  Sex: Male
  Weight: 52 kg

DRUGS (3)
  1. VENTAVIS [Suspect]
     Indication: PULMONARY HYPERTENSION
     Dosage: 9 X 1
     Route: 055
     Dates: start: 20120802, end: 20130404
  2. TRACLEER [Concomitant]
     Dosage: 125 MG, BID
     Route: 048
     Dates: start: 20121101
  3. REVATIO [Concomitant]
     Dosage: 20 MG, UNK
     Route: 048
     Dates: start: 20121228

REACTIONS (3)
  - Rash papular [Not Recovered/Not Resolved]
  - Rash [Recovered/Resolved]
  - Headache [Recovered/Resolved]
